FAERS Safety Report 25272749 (Version 1)
Quarter: 2025Q2

REPORT INFORMATION
  Report Type: Spontaneous
  Country: US (occurrence: US)
  Receive Date: 20250506
  Receipt Date: 20250506
  Transmission Date: 20250716
  Serious: Yes (Other)
  Sender: SANOFI AVENTIS
  Company Number: US-SA-2025SA125104

PATIENT
  Age: 59 Year
  Sex: Female
  Weight: 79.55 kg

DRUGS (6)
  1. DUPIXENT [Suspect]
     Active Substance: DUPILUMAB
     Indication: Asthma
     Dosage: 300 MG, QOW
     Route: 058
     Dates: start: 20240930, end: 20250218
  2. TYLENOL [Concomitant]
     Active Substance: ACETAMINOPHEN
  3. CEFDINIR [Concomitant]
     Active Substance: CEFDINIR
  4. BREZTRI AEROSPHERE [BUDESONIDE;FORMOTEROL FUMARATE;GLYCOPYRRONIUM BROM [Concomitant]
  5. CYCLOBENZAPRINE HYDROCHLORIDE [Concomitant]
     Active Substance: CYCLOBENZAPRINE HYDROCHLORIDE
  6. DEXAMETHASONE\NEOMYCIN SULFATE\POLYMYXIN B SULFATE [Concomitant]
     Active Substance: DEXAMETHASONE\NEOMYCIN SULFATE\POLYMYXIN B SULFATE

REACTIONS (5)
  - Hepatitis [Unknown]
  - Pharyngitis streptococcal [Recovered/Resolved]
  - Influenza [Unknown]
  - Vision blurred [Unknown]
  - Keratitis [Unknown]

NARRATIVE: CASE EVENT DATE: 20241201
